FAERS Safety Report 25847961 (Version 1)
Quarter: 2025Q3

REPORT INFORMATION
  Report Type: Spontaneous
  Country: US (occurrence: US)
  Receive Date: 20250925
  Receipt Date: 20250925
  Transmission Date: 20251021
  Serious: Yes (Other)
  Sender: SUNOVION
  Company Number: US-SUNOVION-2016SUN002243

PATIENT
  Sex: Male

DRUGS (2)
  1. LATUDA [Suspect]
     Active Substance: LURASIDONE HYDROCHLORIDE
     Indication: Psychotic disorder
     Route: 048
  2. ABILIFY [Concomitant]
     Active Substance: ARIPIPRAZOLE

REACTIONS (6)
  - Suicidal ideation [Recovered/Resolved]
  - Depressed mood [Recovered/Resolved]
  - Anger [Recovered/Resolved]
  - Hallucination [Recovered/Resolved]
  - Drug withdrawal syndrome [Recovered/Resolved]
  - Anxiety [Recovered/Resolved]
